FAERS Safety Report 6894030-8 (Version None)
Quarter: 2010Q3

REPORT INFORMATION
  Report Type: 
  Country: None (occurrence: None)
  Receive Date: 20100802
  Receipt Date: 20100719
  Transmission Date: 20110219
  Serious: Yes (Other)
  Sender: FDA-Public Use
  Company Number: NL-JNJFOC-20100705233

PATIENT
  Sex: Male
  Weight: 78.4 kg

DRUGS (1)
  1. REMINYL [Suspect]
     Indication: PRODUCT USED FOR UNKNOWN INDICATION
     Route: 065

REACTIONS (6)
  - CONFUSIONAL STATE [None]
  - DRUG PRESCRIBING ERROR [None]
  - ERYTHEMA [None]
  - FEELING HOT [None]
  - PALLOR [None]
  - SYNCOPE [None]
